FAERS Safety Report 20596991 (Version 1)
Quarter: 2022Q1

REPORT INFORMATION
  Report Type: Spontaneous
  Country: US (occurrence: US)
  Receive Date: 20220315
  Receipt Date: 20220315
  Transmission Date: 20220423
  Serious: No
  Sender: FDA-Public Use
  Company Number: US-BRISTOL-MYERS SQUIBB COMPANY-BMS-2022-039462

PATIENT
  Age: 59 Year
  Sex: Female
  Weight: 81.6 kg

DRUGS (2)
  1. SPRYCEL [Suspect]
     Active Substance: DASATINIB
     Indication: Chronic myeloid leukaemia
     Dosage: 100 MILLIGRAM, QD
     Route: 048
     Dates: start: 20220307
  2. ZOFRAN [Concomitant]
     Active Substance: ONDANSETRON HYDROCHLORIDE
     Indication: Product used for unknown indication
     Dosage: TOOK IT THE FIRST TWO NIGHTS BUT THEN DISCONTINUED)
     Route: 065

REACTIONS (3)
  - Eye swelling [Unknown]
  - Gastrointestinal disorder [Unknown]
  - Back pain [Unknown]

NARRATIVE: CASE EVENT DATE: 20220307
